FAERS Safety Report 24753372 (Version 2)
Quarter: 2025Q2

REPORT INFORMATION
  Report Type: Spontaneous
  Country: BR (occurrence: BR)
  Receive Date: 20241219
  Receipt Date: 20250407
  Transmission Date: 20250717
  Serious: Yes (Other)
  Sender: BAYER
  Company Number: BR-BAYER-2024A176455

PATIENT
  Sex: Female

DRUGS (1)
  1. ESTRADIOL VALERATE\NORETHINDRONE ENANTHATE [Suspect]
     Active Substance: ESTRADIOL VALERATE\NORETHINDRONE ENANTHATE
     Indication: Contraception
     Dates: start: 2024

REACTIONS (4)
  - Syncope [None]
  - Presyncope [None]
  - Injection site pain [None]
  - Wrong technique in product usage process [None]

NARRATIVE: CASE EVENT DATE: 20240101
